FAERS Safety Report 18150950 (Version 2)
Quarter: 2020Q3

REPORT INFORMATION
  Report Type: Spontaneous
  Country: GB (occurrence: GB)
  Receive Date: 20200814
  Receipt Date: 20200905
  Transmission Date: 20201103
  Serious: Yes (Hospitalization, Other)
  Sender: FDA-Public Use
  Company Number: GB-MACLEODS PHARMACEUTICALS US LTD-MAC2020027670

PATIENT

DRUGS (7)
  1. LOSARTAN. [Suspect]
     Active Substance: LOSARTAN
     Indication: HYPERTENSION
     Dosage: UNK, EVERY 1 DAY
     Route: 065
     Dates: start: 2014
  2. CALCIUM CARBONATE. [Interacting]
     Active Substance: CALCIUM CARBONATE
     Indication: DYSPEPSIA
     Dosage: INGESTING UP TO NINE TABLETS OF CALCIUM CARBONATE (4,500 MG IN TOTAL) EVERY DAY FOR 2 YEARS, INGESTI
     Route: 048
  3. CALCIUM CARBONATE. [Interacting]
     Active Substance: CALCIUM CARBONATE
     Dosage: 9 DOSAGE FORM, QD, INGESTING UP TO NINE TABLETS OF CALCIUM CARBONATE (4,500 MG IN TOTAL) EVERY DAY F
     Route: 048
     Dates: start: 2017, end: 20190315
  4. PARACETAMOL [Concomitant]
     Active Substance: ACETAMINOPHEN
     Indication: PRODUCT USED FOR UNKNOWN INDICATION
     Dosage: UNK, EVERY
     Route: 065
  5. SIMVASTATIN. [Concomitant]
     Active Substance: SIMVASTATIN
     Dosage: UNK, EVERY
     Route: 065
  6. SIMVASTATIN. [Concomitant]
     Active Substance: SIMVASTATIN
     Indication: PRODUCT USED FOR UNKNOWN INDICATION
     Dosage: UNK, EVERY
     Route: 065
  7. BUPRENORPHINE TRANSDERMAL PATCH [Concomitant]
     Active Substance: BUPRENORPHINE
     Indication: PRODUCT USED FOR UNKNOWN INDICATION
     Dosage: UNK
     Route: 062

REACTIONS (9)
  - Nephrolithiasis [Recovered/Resolved]
  - Condition aggravated [Recovered/Resolved]
  - Drug interaction [Recovered/Resolved]
  - Intentional overdose [Recovered/Resolved]
  - Prescription drug used without a prescription [Recovered/Resolved]
  - Renal impairment [Recovering/Resolving]
  - Milk-alkali syndrome [Recovered/Resolved]
  - Vitamin D deficiency [Recovered/Resolved]
  - Hypercalcaemia [Recovered/Resolved]

NARRATIVE: CASE EVENT DATE: 2019
